FAERS Safety Report 10731626 (Version 1)
Quarter: 2015Q1

REPORT INFORMATION
  Report Type: Spontaneous
  Country: IT (occurrence: IT)
  Receive Date: 20150123
  Receipt Date: 20150123
  Transmission Date: 20150721
  Serious: Yes (Hospitalization)
  Sender: FDA-Public Use
  Company Number: IT-ROCHE-1523608

PATIENT
  Age: 62 Year
  Sex: Male

DRUGS (11)
  1. TAPENTADOL HYDROCHLORIDE [Suspect]
     Active Substance: TAPENTADOL HYDROCHLORIDE
     Indication: PAIN IN EXTREMITY
     Route: 048
     Dates: start: 20150109, end: 20150109
  2. CARDIOASPIRIN [Concomitant]
     Active Substance: ASPIRIN
     Route: 065
  3. ONBREZ BREEZHALER [Concomitant]
     Active Substance: INDACATEROL
     Route: 065
  4. BISOPROLOL HEMIFUMARATE [Concomitant]
     Active Substance: BISOPROLOL FUMARATE
     Route: 065
  5. PANTOPRAZOLE [Concomitant]
     Active Substance: PANTOPRAZOLE SODIUM
  6. ACLIDINIUM BROMIDE [Concomitant]
     Active Substance: ACLIDINIUM BROMIDE
  7. CLONAZEPAM. [Suspect]
     Active Substance: CLONAZEPAM
     Indication: PAIN IN EXTREMITY
     Route: 048
     Dates: start: 20150109, end: 20150109
  8. LEVEMIR [Concomitant]
     Active Substance: INSULIN DETEMIR
     Route: 065
  9. FUROSEMIDE. [Concomitant]
     Active Substance: FUROSEMIDE
     Route: 048
  10. NITROGLYCERINE [Concomitant]
     Active Substance: NITROGLYCERIN
  11. RAMIPRIL. [Concomitant]
     Active Substance: RAMIPRIL
     Route: 065

REACTIONS (3)
  - Loss of consciousness [Unknown]
  - Sopor [Unknown]
  - Respiratory failure [Unknown]

NARRATIVE: CASE EVENT DATE: 20150109
